FAERS Safety Report 6956120-0 (Version None)
Quarter: 2010Q3

REPORT INFORMATION
  Report Type: 
  Country: None (occurrence: None)
  Receive Date: 20100830
  Receipt Date: 20090720
  Transmission Date: 20110219
  Serious: No
  Sender: FDA-Public Use
  Company Number: US-BAUSCH-2009BL003738

PATIENT
  Age: 45 Year
  Sex: Male

DRUGS (2)
  1. CROMOLYN SODIUM [Suspect]
     Indication: SEASONAL ALLERGY
     Route: 045
     Dates: start: 20090713, end: 20090720
  2. ALLEGRA [Concomitant]

REACTIONS (2)
  - INITIAL INSOMNIA [None]
  - INSOMNIA [None]
